FAERS Safety Report 13414669 (Version 3)
Quarter: 2018Q3

REPORT INFORMATION
  Report Type: Spontaneous
  Country: US (occurrence: US)
  Receive Date: 20170406
  Receipt Date: 20180824
  Transmission Date: 20181010
  Serious: Yes (Other)
  Sender: FDA-Public Use
  Company Number: US-JNJFOC-20170403222

PATIENT
  Sex: Male

DRUGS (2)
  1. HUMIRA [Suspect]
     Active Substance: ADALIMUMAB
     Indication: CROHN^S DISEASE
     Route: 058
  2. REMICADE [Suspect]
     Active Substance: INFLIXIMAB
     Indication: PRODUCT USED FOR UNKNOWN INDICATION
     Route: 042

REACTIONS (14)
  - Seasonal allergy [Not Recovered/Not Resolved]
  - Blister [Recovering/Resolving]
  - Pain in extremity [Not Recovered/Not Resolved]
  - Tooth disorder [Recovering/Resolving]
  - Cartilage injury [Not Recovered/Not Resolved]
  - Joint instability [Recovering/Resolving]
  - Arthralgia [Not Recovered/Not Resolved]
  - Oral fungal infection [Recovering/Resolving]
  - Therapeutic response shortened [Unknown]
  - Fall [Recovering/Resolving]
  - Vitamin B12 deficiency [Recovering/Resolving]
  - Haemorrhoids [Not Recovered/Not Resolved]
  - Crohn^s disease [Recovering/Resolving]
  - Gastric infection [Unknown]
